FAERS Safety Report 7656152-3 (Version None)
Quarter: 2011Q3

REPORT INFORMATION
  Report Type: 
  Country: None (occurrence: None)
  Receive Date: 20110801
  Receipt Date: 20110715
  Transmission Date: 20111222
  Serious: Yes (Hospitalization, Other)
  Sender: FDA-Public Use
  Company Number: AUR-APL-2011-04310

PATIENT
  Age: 57 Year
  Sex: Female

DRUGS (17)
  1. ATENOLOL [Suspect]
     Indication: PRODUCT USED FOR UNKNOWN INDICATION
     Dosage: ORAL
     Route: 048
  2. LISINOPRIL [Suspect]
     Indication: PRODUCT USED FOR UNKNOWN INDICATION
     Dosage: ORAL
     Route: 048
  3. LEVOTHYROXINE SODIUM [Concomitant]
  4. NITROGLYCERIN [Concomitant]
  5. HYDROCORTISONE ACETATE [Concomitant]
  6. METOPROLOL TARTRATE [Suspect]
     Indication: PRODUCT USED FOR UNKNOWN INDICATION
  7. OMEPRAZOLE [Concomitant]
  8. ATACAND [Suspect]
     Indication: PRODUCT USED FOR UNKNOWN INDICATION
     Dosage: 16 MG (16 MG, 1 IN 1 D), ORAL; 32 MG (32 MG, 1 IN 1 D), ORAL; 32 MG, (32 MG, 1 IN 1 D), ORAL
     Route: 048
     Dates: start: 20101019
  9. ATACAND [Suspect]
     Indication: PRODUCT USED FOR UNKNOWN INDICATION
     Dosage: 16 MG (16 MG, 1 IN 1 D), ORAL; 32 MG (32 MG, 1 IN 1 D), ORAL; 32 MG, (32 MG, 1 IN 1 D), ORAL
     Route: 048
     Dates: start: 20110111
  10. ATACAND [Suspect]
     Indication: PRODUCT USED FOR UNKNOWN INDICATION
     Dosage: 16 MG (16 MG, 1 IN 1 D), ORAL; 32 MG (32 MG, 1 IN 1 D), ORAL; 32 MG, (32 MG, 1 IN 1 D), ORAL
     Route: 048
     Dates: start: 20101109, end: 20101129
  11. RANOLAZINE [Concomitant]
  12. SIMVASTATIN [Concomitant]
  13. GOLYTELY [Concomitant]
  14. LORAZEPAM [Concomitant]
  15. FENTANYL [Suspect]
     Indication: PRODUCT USED FOR UNKNOWN INDICATION
     Dosage: ORAL
     Route: 048
     Dates: start: 20110111
  16. HYDROCODONE [Concomitant]
  17. ACETYLSALICYLIC ACID SRT [Concomitant]

REACTIONS (17)
  - LACTOSE INTOLERANCE [None]
  - PRURITUS [None]
  - RENAL DISORDER [None]
  - ABDOMINAL PAIN [None]
  - COLITIS ULCERATIVE [None]
  - DIARRHOEA [None]
  - BRADYCARDIA [None]
  - BLOOD COUNT ABNORMAL [None]
  - HYPOTENSION [None]
  - FLATULENCE [None]
  - CEREBROVASCULAR ACCIDENT [None]
  - DYSPNOEA [None]
  - ANGINA PECTORIS [None]
  - DEHYDRATION [None]
  - ABDOMINAL DISTENSION [None]
  - DRUG HYPERSENSITIVITY [None]
  - COUGH [None]
